FAERS Safety Report 6230608-2 (Version None)
Quarter: 2009Q2

REPORT INFORMATION
  Report Type: 
  Country: None (occurrence: None)
  Receive Date: 20090611
  Receipt Date: 20090527
  Transmission Date: 20091009
  Serious: Yes (Life-Threatening)
  Sender: FDA-Public Use
  Company Number: 8045618

PATIENT
  Age: 28 Year
  Sex: Male

DRUGS (1)
  1. CIMZIA [Suspect]
     Indication: CROHN'S DISEASE
     Dosage: 400 MG SC
     Route: 058
     Dates: start: 20090429, end: 20090429

REACTIONS (7)
  - ANAPHYLACTIC REACTION [None]
  - CHEST PAIN [None]
  - DRUG HYPERSENSITIVITY [None]
  - HEADACHE [None]
  - HEART RATE INCREASED [None]
  - INJECTION SITE PRURITUS [None]
  - INJECTION SITE SWELLING [None]
